FAERS Safety Report 9301781 (Version 3)
Quarter: 2013Q3

REPORT INFORMATION
  Report Type: Spontaneous
  Country: US (occurrence: US)
  Receive Date: 20130521
  Receipt Date: 20130713
  Transmission Date: 20140515
  Serious: Yes (Other)
  Sender: FDA-Public Use
  Company Number: US-JNJFOC-20130507997

PATIENT
  Age: 78 Year
  Sex: Female
  Weight: 52.16 kg

DRUGS (4)
  1. ZYRTEC IR [Suspect]
     Route: 048
  2. ZYRTEC IR [Suspect]
     Indication: MULTIPLE ALLERGIES
     Route: 048
     Dates: start: 20130513, end: 20130513
  3. ARMOUR THYROID [Concomitant]
     Indication: THYROID DISORDER
     Route: 065
  4. VITAMIN [Concomitant]
     Indication: PRODUCT USED FOR UNKNOWN INDICATION

REACTIONS (2)
  - Speech disorder [Recovered/Resolved]
  - Drug administered to patient of inappropriate age [Unknown]
